FAERS Safety Report 10083267 (Version 1)
Quarter: 2014Q2

REPORT INFORMATION
  Report Type: Spontaneous
  Country: US (occurrence: None)
  Receive Date: 20140415
  Receipt Date: 20140415
  Transmission Date: 20141212
  Serious: Yes (Other)
  Sender: FDA-Public Use
  Company Number: 001706130A

PATIENT
  Age: 14 Year
  Sex: Male

DRUGS (4)
  1. PROACTIVE [Suspect]
     Indication: ACNE
     Dosage: TWICE DAILY DERMAL
     Dates: start: 20140222, end: 20140227
  2. PROACTIVE [Suspect]
     Indication: ACNE
     Dosage: TWICE DAILLY DERMAL
     Dates: start: 20140222, end: 20140227
  3. PROACTIVE [Suspect]
     Dosage: DERMAL
     Dates: start: 20140222, end: 20140227
  4. PROACTIVE [Suspect]
     Dosage: DERMAL
     Dates: start: 20140222, end: 20140227

REACTIONS (3)
  - Rash [None]
  - Urticaria [None]
  - Pruritus [None]
